FAERS Safety Report 9849786 (Version 1)
Quarter: 2014Q1

REPORT INFORMATION
  Report Type: Spontaneous
  Country: US (occurrence: US)
  Receive Date: 20140128
  Receipt Date: 20140128
  Transmission Date: 20141002
  Serious: No
  Sender: FDA-Public Use
  Company Number: US-BAXTER-2014BAX002717

PATIENT
  Sex: Male

DRUGS (4)
  1. DIANEAL LOW CALCIUM [Suspect]
     Indication: PERITONEAL DIALYSIS
     Route: 033
  2. DIANEAL LOW CALCIUM [Suspect]
     Indication: PERITONEAL DIALYSIS
     Route: 033
     Dates: start: 201312
  3. DIANEAL LOW CALCIUM [Suspect]
     Indication: PERITONEAL DIALYSIS
     Route: 033
  4. NITRO PATCH (GLYCERYL TRINITRATE) [Suspect]
     Indication: CARDIAC FAILURE CONGESTIVE
     Route: 062

REACTIONS (4)
  - Weight increased [Unknown]
  - Joint swelling [Unknown]
  - Condition aggravated [Recovered/Resolved]
  - Fluid retention [Recovered/Resolved]
